FAERS Safety Report 8520198-3 (Version None)
Quarter: 2012Q3

REPORT INFORMATION
  Report Type: 
  Country: None (occurrence: None)
  Receive Date: 20120709
  Receipt Date: 20120623
  Transmission Date: 20120928
  Serious: Yes (Hospitalization)
  Sender: FDA-Public Use
  Company Number: 2012AP001961

PATIENT
  Age: 50 Year
  Sex: Female

DRUGS (1)
  1. GABAPENTIN [Suspect]
     Indication: PRODUCT USED FOR UNKNOWN INDICATION
     Dosage: 4800 MG;QD, 24000 MG;1X, 500 MG;1X

REACTIONS (8)
  - POSTERIOR REVERSIBLE ENCEPHALOPATHY SYNDROME [None]
  - DEPRESSED LEVEL OF CONSCIOUSNESS [None]
  - STATUS EPILEPTICUS [None]
  - HYPERTENSION [None]
  - MOVEMENT DISORDER [None]
  - DRUG ABUSE [None]
  - RESPIRATORY DEPRESSION [None]
  - OVERDOSE [None]
